FAERS Safety Report 21424157 (Version 1)
Quarter: 2022Q4

REPORT INFORMATION
  Report Type: Spontaneous
  Country: JP (occurrence: JP)
  Receive Date: 20221007
  Receipt Date: 20221007
  Transmission Date: 20230113
  Serious: Yes (Other)
  Sender: FDA-Public Use
  Company Number: JP-LUNDBECK-DKLU3053110

PATIENT
  Sex: Female

DRUGS (1)
  1. ESCITALOPRAM OXALATE [Suspect]
     Active Substance: ESCITALOPRAM OXALATE
     Indication: Product used for unknown indication
     Dosage: UNK
     Route: 048

REACTIONS (7)
  - Arrhythmia [Unknown]
  - Bradycardia [Unknown]
  - Hypohidrosis [Unknown]
  - Pruritus [Unknown]
  - Malaise [Unknown]
  - Tachycardia [Unknown]
  - Dizziness [Unknown]
